FAERS Safety Report 24315813 (Version 1)
Quarter: 2024Q3

REPORT INFORMATION
  Report Type: Spontaneous
  Country: LV (occurrence: LV)
  Receive Date: 20240913
  Receipt Date: 20240913
  Transmission Date: 20241017
  Serious: Yes (Hospitalization, Other)
  Sender: RANBAXY
  Company Number: LV-SUN PHARMACEUTICAL INDUSTRIES LTD-2024R1-467604

PATIENT
  Age: 36 Year
  Sex: Female

DRUGS (1)
  1. SERTRALINE [Suspect]
     Active Substance: SERTRALINE HYDROCHLORIDE
     Indication: Major depression
     Dosage: 50 MILLIGRAM
     Route: 065

REACTIONS (2)
  - Hepatocellular injury [Unknown]
  - Hepatotoxicity [Unknown]
